FAERS Safety Report 8492756-6 (Version None)
Quarter: 2012Q3

REPORT INFORMATION
  Report Type: 
  Country: None (occurrence: None)
  Receive Date: 20120706
  Receipt Date: 20120627
  Transmission Date: 20120928
  Serious: No
  Sender: FDA-Public Use
  Company Number: US-B.I. PHARMACEUTICALS,INC./RIDGEFIELD-2012-BP-14657BP

PATIENT
  Sex: Female

DRUGS (16)
  1. BUMEX [Concomitant]
     Indication: CARDIAC FAILURE CONGESTIVE
     Route: 048
  2. PEPCID [Concomitant]
     Indication: GASTRIC PH DECREASED
     Dosage: 20 MG
  3. POTASSIUM [Concomitant]
  4. BYSTOLIC [Concomitant]
     Indication: HYPERTENSION
     Dosage: 20 MG
     Route: 048
  5. MINOXIDIL [Concomitant]
     Dosage: 25 MG
  6. LEVOTHYROXINE SODIUM [Concomitant]
     Indication: THYROID DISORDER
     Dosage: 225 MCG
  7. ALLOPURINOL [Concomitant]
     Indication: NEPHROLITHIASIS
  8. ASTELIN [Concomitant]
     Indication: HYPERSENSITIVITY
     Route: 045
  9. HYDROCODONE BITARTRATE [Concomitant]
     Indication: BACK DISORDER
     Route: 048
  10. BENICAR [Concomitant]
     Indication: HYPERTENSION
     Route: 048
  11. OXYGEN [Concomitant]
     Indication: DYSPNOEA
     Route: 045
  12. ALLOPURINOL [Concomitant]
     Indication: GOUT
     Dosage: 300 MG
  13. ELAVIL [Concomitant]
     Indication: SLEEP DISORDER
     Dosage: 75 MG
     Route: 048
  14. VITAMIN D [Concomitant]
     Indication: VITAMIN D DEFICIENCY
  15. TRADJENTA [Suspect]
     Indication: TYPE 2 DIABETES MELLITUS
     Dosage: 5 MG
     Route: 048
     Dates: start: 20120508
  16. CLONIDINE [Concomitant]
     Indication: HYPERTENSION
     Dosage: 200 MCG
     Route: 048

REACTIONS (3)
  - ARTHRALGIA [None]
  - JOINT RANGE OF MOTION DECREASED [None]
  - BLOOD GLUCOSE INCREASED [None]
